FAERS Safety Report 8277139-6 (Version None)
Quarter: 2012Q2

REPORT INFORMATION
  Report Type: 
  Country: None (occurrence: None)
  Receive Date: 20120412
  Receipt Date: 20120405
  Transmission Date: 20120825
  Serious: Yes (Death, Hospitalization, Other)
  Sender: FDA-Public Use
  Company Number: FR-PFIZER INC-2012085897

PATIENT
  Age: 62 Year
  Sex: Male

DRUGS (15)
  1. ACETAMINOPHEN [Suspect]
     Indication: TOXICITY TO VARIOUS AGENTS
     Dosage: UNK
     Dates: start: 20091122, end: 20091122
  2. ATACAND [Concomitant]
     Dosage: 16 MG, 1X/DAY
  3. IBUPROFEN TABLETS [Suspect]
     Dosage: UNK
     Route: 048
     Dates: start: 20091122, end: 20091122
  4. NEXIUM [Concomitant]
     Dosage: 40 MG
  5. FLUTICASONE PROPIONATE/SALMETEROL [Concomitant]
     Dosage: 500 UG, 2X/DAY
  6. ATARAX [Concomitant]
     Dosage: UNK
     Route: 048
  7. PROPRANOLOL [Concomitant]
     Dosage: 160 MG, 1X/DAY
  8. CRESTOR [Concomitant]
     Dosage: 10 MG, 1X/DAY
  9. PLAVIX [Concomitant]
     Dosage: 75 MG, 1X/DAY
  10. ACETAMINOPHEN W/ PROPOXYPHENE HCL [Suspect]
     Dosage: UNK
     Route: 048
     Dates: end: 20091122
  11. PNEUMO 23 [Concomitant]
     Dosage: UNK
  12. XANAX [Suspect]
     Indication: ANXIETY
     Dosage: 0.5 MG, UNK
     Route: 048
     Dates: end: 20091122
  13. PREDNISONE TAB [Concomitant]
     Dosage: 20 MG, ALTERNATE DAY
  14. ACTONEL [Concomitant]
     Dosage: 35 MG, WEEKLY
  15. ARAVA [Concomitant]
     Dosage: 20 MG, 1X/DAY

REACTIONS (7)
  - RESPIRATORY FAILURE [None]
  - SHOCK [None]
  - HEPATITIS FULMINANT [None]
  - GENERAL PHYSICAL HEALTH DETERIORATION [None]
  - MULTI-ORGAN FAILURE [None]
  - OCULAR ICTERUS [None]
  - TOXICITY TO VARIOUS AGENTS [None]
